FAERS Safety Report 25790882 (Version 1)
Quarter: 2025Q3

REPORT INFORMATION
  Report Type: Spontaneous
  Country: AU (occurrence: AU)
  Receive Date: 20250911
  Receipt Date: 20250911
  Transmission Date: 20251021
  Serious: Yes (Hospitalization, Other)
  Sender: AZURITY PHARMACEUTICALS
  Company Number: AU-AZURITY PHARMACEUTICALS, INC.-AZR202508-002727

PATIENT
  Age: 24 Year
  Sex: Male

DRUGS (7)
  1. BACLOFEN [Suspect]
     Active Substance: BACLOFEN
     Indication: Alcohol use disorder
     Route: 048
  2. BACLOFEN [Suspect]
     Active Substance: BACLOFEN
     Route: 048
  3. BACLOFEN [Suspect]
     Active Substance: BACLOFEN
     Route: 048
  4. DEXMEDETOMIDINE HYDROCHLORIDE [Suspect]
     Active Substance: DEXMEDETOMIDINE HYDROCHLORIDE
     Indication: Sedation
     Route: 065
  5. ESCITALOPRAM [Suspect]
     Active Substance: ESCITALOPRAM OXALATE
     Indication: Alcohol use disorder
     Dosage: 20 MILLIGRAM, DAILY
     Route: 065
  6. ESCITALOPRAM [Suspect]
     Active Substance: ESCITALOPRAM OXALATE
     Route: 065
  7. ALCOHOL [Suspect]
     Active Substance: ALCOHOL
     Indication: Product used for unknown indication
     Route: 065

REACTIONS (10)
  - Bradyarrhythmia [Recovered/Resolved]
  - Cardiac arrest [Recovered/Resolved]
  - Agitation [Recovered/Resolved]
  - Delirium [Recovered/Resolved]
  - Toxicity to various agents [Recovered/Resolved]
  - Cardiac output decreased [Recovered/Resolved]
  - Mental status changes [Recovered/Resolved]
  - Hypotension [Recovered/Resolved]
  - Drug withdrawal syndrome [Recovered/Resolved]
  - Intentional overdose [Unknown]
